FAERS Safety Report 16216746 (Version 1)
Quarter: 2019Q2

REPORT INFORMATION
  Report Type: Spontaneous
  Country: JP (occurrence: JP)
  Receive Date: 20190419
  Receipt Date: 20190419
  Transmission Date: 20190711
  Serious: Yes (Hospitalization)
  Sender: FDA-Public Use
  Company Number: JP-TOLMAR, INC.-2019JP003874

PATIENT

DRUGS (2)
  1. BICALUTAMIDE. [Suspect]
     Active Substance: BICALUTAMIDE
     Indication: PROSTATE CANCER METASTATIC
     Dosage: 80 MG, PER DAY
     Route: 048
  2. ELIGARD [Suspect]
     Active Substance: LEUPROLIDE ACETATE
     Indication: PROSTATE CANCER METASTATIC
     Dosage: 11.25 MG, PER 12 WEEKS
     Route: 065

REACTIONS (5)
  - Ventricular fibrillation [Recovering/Resolving]
  - Cardiac failure congestive [Recovering/Resolving]
  - Long QT syndrome [Recovering/Resolving]
  - Inappropriate schedule of product administration [Unknown]
  - Torsade de pointes [Recovering/Resolving]
